FAERS Safety Report 8843614 (Version 1)
Quarter: 2012Q4

REPORT INFORMATION
  Report Type: Report from Study
  Country: US (occurrence: US)
  Receive Date: 20121016
  Receipt Date: 20121016
  Transmission Date: 20130627
  Serious: Yes (Other)
  Sender: FDA-Public Use
  Company Number: US-ABBOTT-12P-163-0992500-00

PATIENT
  Sex: Female
  Weight: 56.75 kg

DRUGS (7)
  1. SIMCOR [Suspect]
     Indication: LIPOPROTEIN (A)
     Dosage: 1000mg/unknown second dose
     Dates: start: 2009
  2. SIMCOR [Suspect]
     Dosage: increased to 2-1000mg/unknown second dose
  3. SIMCOR [Suspect]
     Dosage: 1-1000mg/unknown second dose
  4. HYDROCHLOROTHIAZIDE [Concomitant]
     Indication: PRODUCT USED FOR UNKNOWN INDICATION
  5. POTASSIUM [Concomitant]
     Indication: PRODUCT USED FOR UNKNOWN INDICATION
  6. FISH OIL [Concomitant]
     Indication: PRODUCT USED FOR UNKNOWN INDICATION
  7. LORATADINE [Concomitant]
     Indication: PRODUCT USED FOR UNKNOWN INDICATION
     Dosage: every day

REACTIONS (7)
  - Nephrolithiasis [Recovered/Resolved]
  - Flushing [Not Recovered/Not Resolved]
  - Feeling hot [Not Recovered/Not Resolved]
  - Erythema [Not Recovered/Not Resolved]
  - Paraesthesia [Unknown]
  - Poor quality sleep [Unknown]
  - Insomnia [Unknown]
